FAERS Safety Report 16736119 (Version 2)
Quarter: 2019Q3

REPORT INFORMATION
  Report Type: Spontaneous
  Country: FI (occurrence: US)
  Receive Date: 20190823
  Receipt Date: 20190906
  Transmission Date: 20191005
  Serious: No
  Sender: FDA-Public Use
  Company Number: FI-SA-2019SA219257

PATIENT
  Age: 16 Year
  Sex: Female
  Weight: 63 kg

DRUGS (1)
  1. LOVENOX [Suspect]
     Active Substance: ENOXAPARIN SODIUM
     Dosage: 0.6 ML, BID
     Route: 065
     Dates: start: 20190726, end: 20190806

REACTIONS (2)
  - Liver function test increased [Unknown]
  - Intentional product use issue [Unknown]
